FAERS Safety Report 11759551 (Version 1)
Quarter: 2015Q4

REPORT INFORMATION
  Report Type: Spontaneous
  Country: US (occurrence: US)
  Receive Date: 20151120
  Receipt Date: 20151120
  Transmission Date: 20160304
  Serious: No
  Sender: FDA-Public Use
  Company Number: US-JNJFOC-20151008019

PATIENT
  Age: 18 Year
  Sex: Male
  Weight: 70.31 kg

DRUGS (4)
  1. MENS ROGAINE EXTRA STRENGTH [Suspect]
     Active Substance: MINOXIDIL
     Route: 061
  2. MENS ROGAINE EXTRA STRENGTH [Suspect]
     Active Substance: MINOXIDIL
     Indication: ALOPECIA
     Dosage: AT NIGHT
     Route: 061
     Dates: end: 20151008
  3. MENS ROGAINE UNSCENTED FORMULA [Suspect]
     Active Substance: MINOXIDIL
     Indication: ALOPECIA
     Dosage: HALF CAP EVERY MORNING FOR TWO WEEKS
     Route: 061
     Dates: end: 20151009
  4. MENS ROGAINE UNSCENTED FORMULA [Suspect]
     Active Substance: MINOXIDIL
     Route: 061

REACTIONS (10)
  - Skin exfoliation [Not Recovered/Not Resolved]
  - Alopecia [Not Recovered/Not Resolved]
  - Pruritus [Not Recovered/Not Resolved]
  - Dry skin [Not Recovered/Not Resolved]
  - Application site pruritus [None]
  - Application site exfoliation [None]
  - Application site irritation [None]
  - Application site dryness [None]
  - Inappropriate schedule of drug administration [Not Recovered/Not Resolved]
  - Hair texture abnormal [Not Recovered/Not Resolved]
